FAERS Safety Report 23134668 (Version 2)
Quarter: 2023Q4

REPORT INFORMATION
  Report Type: Spontaneous
  Country: US (occurrence: US)
  Receive Date: 20231101
  Receipt Date: 20231113
  Transmission Date: 20240109
  Serious: Yes (Other)
  Sender: FDA-Public Use
  Company Number: US-TEVA-2023-US-2940176

PATIENT
  Age: 54 Year
  Sex: Male

DRUGS (11)
  1. GABAPENTIN [Suspect]
     Active Substance: GABAPENTIN
     Indication: Neuropathy peripheral
     Route: 065
  2. ACAMPROSATE [Suspect]
     Active Substance: ACAMPROSATE
     Indication: Alcohol use disorder
     Route: 048
  3. CHLORDIAZEPOXIDE [Suspect]
     Active Substance: CHLORDIAZEPOXIDE
     Indication: Alcohol withdrawal syndrome
     Dosage: HE HAD BEEN GIVEN A TOTAL CHLORDIAZEPOXIDE 800MG OVER THE 24H LEADING UP TO HIS FINAL DO
     Route: 048
  4. METOPROLOL [Suspect]
     Active Substance: METOPROLOL
     Indication: Product used for unknown indication
     Route: 065
  5. DULOXETINE [Suspect]
     Active Substance: DULOXETINE
     Indication: Major depression
     Route: 065
  6. ATORVASTATIN [Suspect]
     Active Substance: ATORVASTATIN
     Indication: Product used for unknown indication
     Route: 065
  7. NALTREXONE [Suspect]
     Active Substance: NALTREXONE
     Indication: Alcohol use disorder
     Dosage: LONG-ACTING
     Route: 065
  8. LORAZEPAM [Suspect]
     Active Substance: LORAZEPAM
     Indication: Alcohol withdrawal syndrome
     Route: 042
  9. ASPIRIN [Suspect]
     Active Substance: ASPIRIN
     Indication: Product used for unknown indication
     Route: 065
  10. ACETAMINOPHEN [Suspect]
     Active Substance: ACETAMINOPHEN
     Indication: Product used for unknown indication
     Route: 065
  11. INSULIN NOS [Concomitant]
     Active Substance: INSULIN NOS
     Indication: Type 2 diabetes mellitus
     Route: 065

REACTIONS (1)
  - Delirium [Unknown]
